FAERS Safety Report 7636370-0 (Version None)
Quarter: 2011Q3

REPORT INFORMATION
  Report Type: 
  Country: None (occurrence: None)
  Receive Date: 20110726
  Receipt Date: 20110718
  Transmission Date: 20111222
  Serious: Yes (Life-Threatening)
  Sender: FDA-Public Use
  Company Number: FR-GLAXOSMITHKLINE-B0733497A

PATIENT
  Sex: Male

DRUGS (2)
  1. PIOGLITAZONE HYDROCHLORIDE/METFORMIN HYDROCHLORIDE [Suspect]
     Indication: TYPE 2 DIABETES MELLITUS
     Dosage: 2UNIT PER DAY
     Route: 048
     Dates: start: 20071101, end: 20110429
  2. AVANDAMET [Suspect]
     Indication: TYPE 2 DIABETES MELLITUS
     Dosage: 2TAB PER DAY
     Route: 048
     Dates: start: 20041211, end: 20100916

REACTIONS (2)
  - PAPILLARY TUMOUR OF RENAL PELVIS [None]
  - HAEMATURIA [None]
